FAERS Safety Report 8160850-5 (Version None)
Quarter: 2012Q1

REPORT INFORMATION
  Report Type: 
  Country: None (occurrence: None)
  Receive Date: 20120223
  Receipt Date: 20120220
  Transmission Date: 20120608
  Serious: Yes (Other)
  Sender: FDA-Public Use
  Company Number: PHHY2011DE88049

PATIENT
  Sex: Male
  Weight: 85 kg

DRUGS (2)
  1. FAMPYRA [Concomitant]
     Dosage: 10 MG, BID
     Route: 048
     Dates: start: 20111223
  2. GILENYA [Suspect]
     Indication: MULTIPLE SCLEROSIS
     Dosage: 0.5 MG, QD
     Route: 048
     Dates: start: 20110901

REACTIONS (4)
  - DIZZINESS [None]
  - GAIT DISTURBANCE [None]
  - BACK PAIN [None]
  - HYPERTENSION [None]
